FAERS Safety Report 9507076 (Version 1)
Quarter: 2013Q3

REPORT INFORMATION
  Report Type: Spontaneous
  Country: JP (occurrence: None)
  Receive Date: 20130904
  Receipt Date: 20130904
  Transmission Date: 20140515
  Serious: Yes (Hospitalization, Other)
  Sender: FDA-Public Use
  Company Number: ADR-2013-01544

PATIENT
  Age: 70 Year
  Sex: Male

DRUGS (2)
  1. GABALON [Suspect]
     Dosage: 30MG/DAY, 15MG/DAY
  2. MORPHINE HYDROCHLORIDE [Suspect]
     Dosage: 60MG/DAY

REACTIONS (8)
  - Cognitive disorder [None]
  - Dyskinesia [None]
  - Altered state of consciousness [None]
  - Drug withdrawal syndrome [None]
  - Myocardial infarction [None]
  - Coronary artery stenosis [None]
  - Overdose [None]
  - Hypophagia [None]
